FAERS Safety Report 8052087-5 (Version None)
Quarter: 2012Q1

REPORT INFORMATION
  Report Type: 
  Country: None (occurrence: None)
  Receive Date: 20120118
  Receipt Date: 20120113
  Transmission Date: 20120608
  Serious: No
  Sender: FDA-Public Use
  Company Number: US-PFIZER INC-2012011083

PATIENT
  Sex: Female
  Weight: 72.6 kg

DRUGS (2)
  1. LYRICA [Suspect]
     Dosage: UNK
     Route: 048
     Dates: start: 20110101
  2. LYRICA [Suspect]
     Indication: MIGRAINE
     Dosage: 50MG IN MORNING AND 75MG AT NIGHT
     Route: 048
     Dates: start: 20110701, end: 20110101

REACTIONS (3)
  - SLEEP DISORDER [None]
  - DRUG INEFFECTIVE [None]
  - WEIGHT INCREASED [None]
